FAERS Safety Report 21302761 (Version 7)
Quarter: 2022Q4

REPORT INFORMATION
  Report Type: Spontaneous
  Country: US (occurrence: US)
  Receive Date: 20220907
  Receipt Date: 20221104
  Transmission Date: 20230113
  Serious: Yes (Hospitalization, Disabling, Other)
  Sender: FDA-Public Use
  Company Number: US-PFIZER INC-PV202200058126

PATIENT
  Age: 55 Year
  Sex: Female
  Weight: 99.34 kg

DRUGS (12)
  1. PAXLOVID [Suspect]
     Active Substance: NIRMATRELVIR\RITONAVIR
     Indication: COVID-19 treatment
     Dosage: 300 MG/150 MG, TWO TIMES A DAY
     Dates: start: 20220819, end: 20220825
  2. CYCLOBENZAPRINE [Concomitant]
     Active Substance: CYCLOBENZAPRINE
     Indication: Muscle spasms
     Dosage: 5 MG, AS NEEDED (THREE TIMES DAILY)
     Route: 048
  3. FLUTICASONE PROPIONATE [Concomitant]
     Active Substance: FLUTICASONE PROPIONATE
     Indication: Rhinitis
     Dosage: 100 UG, AS NEEDED (DAILY)
  4. ACETAMINOPHEN\HYDROCODONE [Concomitant]
     Active Substance: ACETAMINOPHEN\HYDROCODONE
     Indication: Pain
     Dosage: 1 DF, AS NEEDED (EVERY 6 HOURS)
     Route: 048
  5. IBUPROFEN [Concomitant]
     Active Substance: IBUPROFEN
     Indication: Pain
     Dosage: 200 MG, AS NEEDED (EVERY 6 HOURS)
     Route: 048
  6. MELOXICAM [Concomitant]
     Active Substance: MELOXICAM
     Dosage: 15 MG, 1X/DAY
     Route: 048
  7. ONDANSETRON [Concomitant]
     Active Substance: ONDANSETRON
     Dosage: 4 MG, AS NEEDED (EVERY 12 HOURS)
     Route: 048
  8. PHENAZOPYRIDINE [Concomitant]
     Active Substance: PHENAZOPYRIDINE
     Dosage: 200 MG, 3X/DAY (FOR 3DAYS)
     Route: 048
  9. ALBUTEROL [Concomitant]
     Active Substance: ALBUTEROL
     Indication: Wheezing
     Dosage: UNK, AS NEEDED (2 PUFF INTO THE LUNGS EVERY 6 HOURS)
  10. CITALOPRAM [Concomitant]
     Active Substance: CITALOPRAM HYDROBROMIDE
     Dosage: 40 MG, 1X/DAY
     Route: 048
     Dates: end: 20221020
  11. ACETAMINOPHEN [Concomitant]
     Active Substance: ACETAMINOPHEN
     Indication: Pain
     Dosage: 650 MG
     Dates: end: 20221020
  12. ACETAMINOPHEN [Concomitant]
     Active Substance: ACETAMINOPHEN
     Dosage: 500 MG, AS NEEDED (EVERY 6 HOURS)
     Route: 048

REACTIONS (18)
  - Pyelonephritis [Not Recovered/Not Resolved]
  - Sepsis [Not Recovered/Not Resolved]
  - Hepatic lesion [Not Recovered/Not Resolved]
  - Polyneuropathy [Not Recovered/Not Resolved]
  - Blood culture positive [Unknown]
  - Hypokalaemia [Unknown]
  - Normocytic anaemia [Unknown]
  - Hypomagnesaemia [Unknown]
  - Dehydration [Unknown]
  - Dysgeusia [Recovering/Resolving]
  - Decreased appetite [Not Recovered/Not Resolved]
  - Gastrointestinal disorder [Not Recovered/Not Resolved]
  - Abdominal discomfort [Not Recovered/Not Resolved]
  - Crying [Unknown]
  - Escherichia urinary tract infection [Unknown]
  - Hepatomegaly [Unknown]
  - Product use issue [Unknown]
  - Product prescribing error [Unknown]

NARRATIVE: CASE EVENT DATE: 20220801
